FAERS Safety Report 18761570 (Version 1)
Quarter: 2021Q1

REPORT INFORMATION
  Report Type: Spontaneous
  Country: FR (occurrence: FR)
  Receive Date: 20210120
  Receipt Date: 20210120
  Transmission Date: 20210419
  Serious: Yes (Death, Life-Threatening, Hospitalization, Other)
  Sender: FDA-Public Use
  Company Number: FR-ACCORD-214799

PATIENT
  Age: 87 Year
  Sex: Female

DRUGS (11)
  1. METHYLPREDNISOLONE. [Suspect]
     Active Substance: METHYLPREDNISOLONE
     Indication: COVID-19
     Dosage: 1 MILLIGRAM/KILOGRAM, QD
     Route: 065
     Dates: start: 2020
  2. HYDROXYCHLOROQUINE [Suspect]
     Active Substance: HYDROXYCHLOROQUINE
     Indication: COVID-19
     Dosage: 200 MG, 2X/DAY
  3. VORICONAZOLE. [Concomitant]
     Active Substance: VORICONAZOLE
     Indication: ANTIBIOTIC THERAPY
     Dosage: 12 MILLIGRAM/KILOGRAM, QD (6 MG/KG, 2X/DAY)
     Route: 042
     Dates: start: 2020
  4. SPIRAMYCIN/SPIRAMYCIN 2/SPIRAMYCIN ACETYLATE/SPIRAMYCIN ADEPATE [Suspect]
     Active Substance: SPIRAMYCIN
     Indication: COVID-19
     Dosage: 4.5 MEGA?INTERNATIONAL UNIT, QD (1.5 MIU, 3X/DAY)
     Dates: start: 2020, end: 2020
  5. VORICONAZOLE. [Concomitant]
     Active Substance: VORICONAZOLE
     Indication: ANTIBIOTIC THERAPY
     Dosage: 8 MILLIGRAM/KILOGRAM, QD (4 MG/KG, 2X/DAY)
     Route: 042
     Dates: start: 2020
  6. CEFTRIAXONE. [Suspect]
     Active Substance: CEFTRIAXONE
     Indication: COVID-19
     Dosage: 2000 MG, 1X/DAY
     Dates: start: 2020, end: 2020
  7. VORICONAZOLE. [Concomitant]
     Active Substance: VORICONAZOLE
     Indication: ANTIBIOTIC THERAPY
     Dosage: 6 MILLIGRAM/KILOGRAM, BID
     Route: 042
  8. ENOXAPARIN [Suspect]
     Active Substance: ENOXAPARIN
     Indication: THROMBOSIS PROPHYLAXIS
     Dosage: 6000 IU (AXA)
     Dates: start: 2020
  9. VORICONAZOLE. [Concomitant]
     Active Substance: VORICONAZOLE
     Indication: ANTIBIOTIC THERAPY
     Dosage: 4 MILLIGRAM/KILOGRAM, BID
     Route: 042
  10. PIPERACILLIN/TAZOBACTAM [Suspect]
     Active Substance: PIPERACILLIN SODIUM\TAZOBACTAM SODIUM
     Indication: COVID-19
     Dosage: UNK
     Dates: start: 2020
  11. METHYLPREDNISOLONE. [Suspect]
     Active Substance: METHYLPREDNISOLONE
     Indication: COVID-19
     Dosage: 1 MILLIGRAM/KILOGRAM, QD
     Route: 065
     Dates: start: 20200330, end: 20200414

REACTIONS (4)
  - Drug ineffective [Fatal]
  - Aspergillus infection [Fatal]
  - Respiratory failure [Fatal]
  - Treatment failure [Unknown]
